FAERS Safety Report 9953896 (Version 1)
Quarter: 2014Q1

REPORT INFORMATION
  Report Type: Spontaneous
  Country: NZ (occurrence: NZ)
  Receive Date: 20140304
  Receipt Date: 20140304
  Transmission Date: 20141002
  Serious: Yes (Other)
  Sender: FDA-Public Use
  Company Number: NZ-PFIZER INC-2014058984

PATIENT
  Age: 10 Year
  Sex: Male

DRUGS (1)
  1. NEURONTIN [Suspect]
     Dosage: 100 MG, 2X/DAY
     Dates: start: 20140227

REACTIONS (8)
  - Intentional drug misuse [Unknown]
  - Tongue movement disturbance [Unknown]
  - Tongue dry [Unknown]
  - Dysphagia [Unknown]
  - Swollen tongue [Unknown]
  - Eyelid oedema [Recovered/Resolved]
  - Rash [Recovered/Resolved]
  - Emotional distress [Unknown]
